FAERS Safety Report 17260118 (Version 1)
Quarter: 2020Q1

REPORT INFORMATION
  Report Type: Spontaneous
  Country: FR (occurrence: FR)
  Receive Date: 20200111
  Receipt Date: 20200111
  Transmission Date: 20200409
  Serious: Yes (Hospitalization)
  Sender: FDA-Public Use
  Company Number: FR-TEVA-2020-FR-1165261

PATIENT
  Age: 22 Year
  Sex: Male

DRUGS (1)
  1. DIAZEPAM. [Suspect]
     Active Substance: DIAZEPAM
     Dosage: NOT SPECIFIED
     Route: 065

REACTIONS (5)
  - Hypotonia [Recovered/Resolved]
  - Cheyne-Stokes respiration [Recovered/Resolved]
  - Coma [Recovered/Resolved]
  - Drug abuse [Unknown]
  - Hypotension [Recovered/Resolved]

NARRATIVE: CASE EVENT DATE: 20191015
